FAERS Safety Report 21678473 (Version 1)
Quarter: 2022Q4

REPORT INFORMATION
  Report Type: Spontaneous
  Country: US (occurrence: US)
  Receive Date: 20221203
  Receipt Date: 20221203
  Transmission Date: 20230113
  Serious: No
  Sender: FDA-Public Use
  Company Number: US-LUPIN PHARMACEUTICALS INC.-2022-13963

PATIENT

DRUGS (1)
  1. ALBUTEROL SULFATE [Suspect]
     Active Substance: ALBUTEROL SULFATE
     Indication: Asthma
     Dosage: UNK UNK, QID 2 PUFFS EVERY 6 HOURS
     Dates: start: 20221110

REACTIONS (5)
  - Wheezing [Unknown]
  - Insomnia [Unknown]
  - Fatigue [Unknown]
  - Drug dose omission by device [Unknown]
  - Device delivery system issue [Unknown]
